FAERS Safety Report 17435809 (Version 2)
Quarter: 2020Q1

REPORT INFORMATION
  Report Type: Spontaneous
  Country: US (occurrence: US)
  Receive Date: 20200219
  Receipt Date: 20200319
  Transmission Date: 20200409
  Serious: Yes (Other)
  Sender: FDA-Public Use
  Company Number: US-BAYER-2020-024106

PATIENT
  Age: 64 Year
  Sex: Male

DRUGS (1)
  1. TINACTIN [Suspect]
     Active Substance: TOLNAFTATE
     Indication: THERAPEUTIC SKIN CARE TOPICAL
     Dosage: UNK
     Route: 061
     Dates: start: 202001

REACTIONS (7)
  - Erythema [Recovering/Resolving]
  - Skin infection [Recovering/Resolving]
  - Expired product administered [Unknown]
  - Impaired healing [Recovering/Resolving]
  - Skin exfoliation [Recovering/Resolving]
  - Localised infection [Unknown]
  - Nail bed infection bacterial [Recovering/Resolving]

NARRATIVE: CASE EVENT DATE: 2020
